FAERS Safety Report 8365432-8 (Version None)
Quarter: 2012Q2

REPORT INFORMATION
  Report Type: 
  Country: None (occurrence: None)
  Receive Date: 20120516
  Receipt Date: 20120509
  Transmission Date: 20120825
  Serious: Yes (Other)
  Sender: FDA-Public Use
  Company Number: US-CELGENEUS-163-21880-12051264

PATIENT
  Sex: Male
  Weight: 82.628 kg

DRUGS (10)
  1. REVLIMID [Suspect]
     Dosage: 25 MILLIGRAM
     Route: 048
     Dates: start: 20120212, end: 20120428
  2. ALBUTEROL [Concomitant]
     Indication: ASTHMA
     Route: 065
  3. WARFARIN SODIUM [Concomitant]
     Dosage: 5 MILLIGRAM
     Route: 065
  4. POTASSIUM CHLORIDE [Concomitant]
     Dosage: 10 MILLIGRAM
     Route: 065
  5. LEVAQUIN [Concomitant]
     Indication: ANTI-INFECTIVE THERAPY
     Route: 065
  6. ACCOLATE [Concomitant]
     Indication: ASTHMA
     Dosage: 20 MILLIGRAM
     Route: 065
  7. FLOVENT [Concomitant]
     Indication: ASTHMA
     Route: 065
  8. LASIX [Concomitant]
     Dosage: 20 MILLIGRAM
     Route: 065
  9. ZOMETA [Concomitant]
     Route: 065
  10. VITAMIN TAB [Concomitant]
     Route: 065

REACTIONS (3)
  - SWELLING [None]
  - ASTHMA [None]
  - DERMATITIS BULLOUS [None]
